FAERS Safety Report 25107401 (Version 1)
Quarter: 2025Q1

REPORT INFORMATION
  Report Type: Spontaneous
  Country: CO (occurrence: CO)
  Receive Date: 20250321
  Receipt Date: 20250321
  Transmission Date: 20250408
  Serious: Yes (Hospitalization, Other)
  Sender: MERCK SHARP & DOHME LLC
  Company Number: CO-009507513-2262708

PATIENT
  Sex: Male

DRUGS (2)
  1. PEMBROLIZUMAB [Suspect]
     Active Substance: PEMBROLIZUMAB
  2. AXITINIB [Suspect]
     Active Substance: AXITINIB
     Dosage: 5 MG, TWICE A DAY

REACTIONS (1)
  - Haemorrhage intracranial [Recovered/Resolved]
